FAERS Safety Report 7068520-1 (Version None)
Quarter: 2010Q4

REPORT INFORMATION
  Report Type: 
  Country: None (occurrence: None)
  Receive Date: 20101028
  Receipt Date: 20101020
  Transmission Date: 20110411
  Serious: Yes (Other)
  Sender: FDA-Public Use
  Company Number: FR-ROCHE-735892

PATIENT
  Age: 49 Year
  Sex: Male

DRUGS (2)
  1. COPEGUS [Suspect]
     Indication: HEPATITIS C
     Route: 048
     Dates: start: 20100301, end: 20100901
  2. VIRAFERONPEG [Suspect]
     Indication: HEPATITIS C
     Route: 058
     Dates: start: 20100301, end: 20100901

REACTIONS (6)
  - ASTHENIA [None]
  - BLOOD LACTATE DEHYDROGENASE INCREASED [None]
  - DRUG INEFFECTIVE [None]
  - RHABDOMYOLYSIS [None]
  - TRANSAMINASES INCREASED [None]
  - WEIGHT DECREASED [None]
